FAERS Safety Report 18557376 (Version 6)
Quarter: 2022Q1

REPORT INFORMATION
  Report Type: Spontaneous
  Country: US (occurrence: US)
  Receive Date: 20201129
  Receipt Date: 20220119
  Transmission Date: 20220423
  Serious: Yes (Other)
  Sender: FDA-Public Use
  Company Number: US-DRREDDYS-USA/USA/20/0129205

PATIENT
  Age: 20 Year
  Sex: Female
  Weight: 48 kg

DRUGS (2)
  1. ZENATANE [Suspect]
     Active Substance: ISOTRETINOIN
     Indication: Product used for unknown indication
     Dosage: RMA ISSUE DATE 10/20/2020 4:44:41 PM
     Route: 048
     Dates: start: 20201021, end: 20201116
  2. DEPO-PROVERA [Concomitant]
     Active Substance: MEDROXYPROGESTERONE ACETATE
     Indication: Contraception
     Dates: start: 202009, end: 202009

REACTIONS (1)
  - Exposure during pregnancy [Not Recovered/Not Resolved]
